FAERS Safety Report 6516883-5 (Version None)
Quarter: 2009Q4

REPORT INFORMATION
  Report Type: 
  Country: None (occurrence: None)
  Receive Date: 20091223
  Receipt Date: 20091214
  Transmission Date: 20100525
  Serious: Yes (Hospitalization)
  Sender: FDA-Public Use
  Company Number: DE-AMGEN-UK374907

PATIENT
  Age: 68 Year
  Sex: Female
  Weight: 74 kg

DRUGS (5)
  1. NEULASTA [Suspect]
     Indication: CHEMOTHERAPY
     Route: 058
     Dates: start: 20090821
  2. EPIRUBICIN [Concomitant]
     Route: 065
  3. CYCLOPHOSPHAMIDE [Concomitant]
  4. DEXAMETHASONE TAB [Concomitant]
     Route: 042
  5. DOCETAXEL [Concomitant]

REACTIONS (1)
  - HERPES ZOSTER OPHTHALMIC [None]
